FAERS Safety Report 10492652 (Version 1)
Quarter: 2014Q4

REPORT INFORMATION
  Report Type: Spontaneous
  Country: US (occurrence: US)
  Receive Date: 20141002
  Receipt Date: 20141002
  Transmission Date: 20150528
  Serious: No
  Sender: FDA-Public Use
  Company Number: US-GLAXOSMITHKLINE-A1073673A

PATIENT
  Sex: Female

DRUGS (11)
  1. LISINOPRIL. [Concomitant]
     Active Substance: LISINOPRIL
  2. HYDROCODONE [Concomitant]
     Active Substance: HYDROCODONE
  3. OMEPRAZOLE. [Concomitant]
     Active Substance: OMEPRAZOLE
  4. VITAMIN D [Concomitant]
     Active Substance: CHOLECALCIFEROL
  5. LEVOTHYROXINE [Concomitant]
     Active Substance: LEVOTHYROXINE
  6. ADVAIR HFA [Suspect]
     Active Substance: FLUTICASONE PROPIONATE\SALMETEROL XINAFOATE
     Indication: DYSPNOEA
     Dosage: 1PUFF TWICE PER DAY
     Route: 055
     Dates: start: 2010
  7. ALENDRONATE [Concomitant]
     Active Substance: ALENDRONATE SODIUM
  8. MELOXICAM. [Concomitant]
     Active Substance: MELOXICAM
  9. OXYGEN. [Concomitant]
     Active Substance: OXYGEN
  10. LOVASTATIN. [Concomitant]
     Active Substance: LOVASTATIN
  11. NEBULIZER [Concomitant]
     Active Substance: UNSPECIFIED INGREDIENT

REACTIONS (2)
  - Dyspnoea [Not Recovered/Not Resolved]
  - Blood cholesterol increased [Unknown]
